FAERS Safety Report 7793394-0 (Version None)
Quarter: 2011Q4

REPORT INFORMATION
  Report Type: 
  Country: None (occurrence: None)
  Receive Date: 20111003
  Receipt Date: 20101119
  Transmission Date: 20120403
  Serious: Yes (Other)
  Sender: FDA-Public Use
  Company Number: US-BAYER-2010-001137

PATIENT
  Sex: Female

DRUGS (1)
  1. ALEVE (CAPLET) [Suspect]
     Dosage: 3-4 TABLETS IN 1.5 DAYS
     Route: 048

REACTIONS (6)
  - ERYTHEMA [None]
  - PYREXIA [None]
  - FACIAL PAIN [None]
  - SWELLING FACE [None]
  - LYMPHADENOPATHY [None]
  - CHILLS [None]
